FAERS Safety Report 6261361-4 (Version None)
Quarter: 2009Q3

REPORT INFORMATION
  Report Type: 
  Country: None (occurrence: None)
  Receive Date: 20090709
  Receipt Date: 20081223
  Transmission Date: 20100115
  Serious: Yes (Other)
  Sender: FDA-Public Use
  Company Number: US-PFIZER INC-2008159759

PATIENT
  Sex: Female
  Weight: 54.431 kg

DRUGS (5)
  1. CHANTIX [Suspect]
     Indication: SMOKING CESSATION THERAPY
     Dates: start: 20080101, end: 20080101
  2. PHENOBARBITAL [Suspect]
     Indication: CONVULSION
  3. VALIUM [Suspect]
     Indication: CONVULSION
     Dates: start: 20081201
  4. HYDROCODONE BITARTRATE [Suspect]
     Indication: HEADACHE
     Dates: start: 20080101
  5. DEPAKENE [Concomitant]
     Indication: EPILEPSY
     Dosage: 500 MG, 3X/DAY

REACTIONS (3)
  - AMNESIA [None]
  - CONVULSION [None]
  - HEAD INJURY [None]
